FAERS Safety Report 6389279-7 (Version None)
Quarter: 2009Q4

REPORT INFORMATION
  Report Type: 
  Country: None (occurrence: None)
  Receive Date: 20091006
  Receipt Date: 20090929
  Transmission Date: 20100525
  Serious: Yes (Death, Hospitalization)
  Sender: FDA-Public Use
  Company Number: PHHY2009IN42009

PATIENT
  Sex: Female

DRUGS (1)
  1. ZOLEDRONIC ACID [Suspect]
     Dosage: 4 MG, QMO
     Route: 042

REACTIONS (10)
  - ARTHRALGIA [None]
  - BACK PAIN [None]
  - BEDRIDDEN [None]
  - DEATH [None]
  - HYPOKINESIA [None]
  - JOINT EFFUSION [None]
  - JOINT SWELLING [None]
  - MUSCULAR WEAKNESS [None]
  - OSTEONECROSIS [None]
  - PARAPARESIS [None]
